FAERS Safety Report 9208155 (Version 1)
Quarter: 2013Q2

REPORT INFORMATION
  Report Type: Spontaneous
  Country: FR (occurrence: FR)
  Receive Date: 20130403
  Receipt Date: 20130403
  Transmission Date: 20140414
  Serious: Yes (Hospitalization)
  Sender: FDA-Public Use
  Company Number: PHHY2013FR031161

PATIENT
  Sex: Female

DRUGS (7)
  1. SINTROM [Suspect]
     Dosage: 4 MG, QD
     Route: 048
     Dates: end: 20130301
  2. AMOXICILLIN [Interacting]
     Dosage: UNK UKN, UNK
     Route: 048
     Dates: start: 20130223, end: 20130302
  3. SPIRONOLACTONE [Concomitant]
     Dosage: UNK UKN, UNK
     Route: 065
  4. FUROSEMIDE [Concomitant]
     Dosage: UNK UKN, UNK
     Route: 065
  5. LEVOTHYROX [Concomitant]
     Dosage: UNK UKN, UNK
  6. BURINEX [Concomitant]
     Dosage: UNK UKN, UNK
     Route: 065
  7. TARDYFERON [Concomitant]
     Dosage: UNK UKN, UNK
     Route: 065

REACTIONS (2)
  - Muscle haemorrhage [Recovered/Resolved]
  - Drug interaction [Unknown]
